FAERS Safety Report 10077324 (Version 2)
Quarter: 2014Q2

REPORT INFORMATION
  Report Type: Spontaneous
  Country: US (occurrence: US)
  Receive Date: 20140414
  Receipt Date: 20140414
  Transmission Date: 20141212
  Serious: No
  Sender: FDA-Public Use
  Company Number: US-BANPHARM-20131326

PATIENT
  Sex: Male

DRUGS (1)
  1. ALEVE LIQUID GELS 220 MG [Suspect]
     Route: 048
     Dates: start: 2013

REACTIONS (1)
  - Swelling face [Unknown]
